FAERS Safety Report 10873705 (Version 5)
Quarter: 2016Q1

REPORT INFORMATION
  Report Type: Report from Study
  Country: US (occurrence: US)
  Receive Date: 20150227
  Receipt Date: 20160219
  Transmission Date: 20160525
  Serious: Yes (Other)
  Sender: FDA-Public Use
  Company Number: US-SA-2013SA112918

PATIENT
  Age: 51 Year
  Sex: Female

DRUGS (4)
  1. AUBAGIO [Suspect]
     Active Substance: TERIFLUNOMIDE
     Indication: MULTIPLE SCLEROSIS
     Route: 048
     Dates: start: 2015
  2. MELATONIN [Concomitant]
     Active Substance: MELATONIN
  3. AUBAGIO [Suspect]
     Active Substance: TERIFLUNOMIDE
     Indication: MULTIPLE SCLEROSIS
     Route: 048
     Dates: start: 20130429, end: 20151027
  4. ASPIRIN. [Concomitant]
     Active Substance: ASPIRIN

REACTIONS (12)
  - Eye disorder [Unknown]
  - Illness anxiety disorder [Unknown]
  - Fatigue [Unknown]
  - Visual impairment [Unknown]
  - Multiple sclerosis relapse [Unknown]
  - Seasonal allergy [Unknown]
  - Obesity [Unknown]
  - Dark circles under eyes [Unknown]
  - Paraesthesia [Unknown]
  - Myocardial infarction [Recovered/Resolved]
  - Amnesia [Not Recovered/Not Resolved]
  - Fall [Unknown]
